FAERS Safety Report 24198638 (Version 2)
Quarter: 2025Q1

REPORT INFORMATION
  Report Type: Spontaneous
  Country: US (occurrence: US)
  Receive Date: 20240812
  Receipt Date: 20250116
  Transmission Date: 20250408
  Serious: No
  Sender: NOVARTIS
  Company Number: US-002147023-NVSC2024US163007

PATIENT
  Sex: Male

DRUGS (8)
  1. MEKINIST [Suspect]
     Active Substance: TRAMETINIB DIMETHYL SULFOXIDE
     Indication: Small intestine carcinoma
     Dosage: 2 MG, QD
     Route: 048
     Dates: start: 202407
  2. MEKINIST [Suspect]
     Active Substance: TRAMETINIB DIMETHYL SULFOXIDE
     Indication: Malignant melanoma
  3. TAFINLAR [Suspect]
     Active Substance: DABRAFENIB MESYLATE
     Indication: Small intestine carcinoma
     Dosage: 225 MG, BID
     Route: 048
     Dates: start: 202407
  4. TAFINLAR [Suspect]
     Active Substance: DABRAFENIB MESYLATE
     Indication: Malignant melanoma
  5. STERILE WATER [Concomitant]
     Active Substance: WATER
     Indication: Product used for unknown indication
     Route: 065
  6. ARCALYST [Concomitant]
     Active Substance: RILONACEPT
     Indication: Product used for unknown indication
     Route: 065
  7. ARCALYST [Concomitant]
     Active Substance: RILONACEPT
     Route: 065
  8. TAFINLAR [Concomitant]
     Active Substance: DABRAFENIB MESYLATE
     Indication: Product used for unknown indication
     Route: 065

REACTIONS (1)
  - Pyrexia [Recovered/Resolved]
